FAERS Safety Report 6567249-3 (Version None)
Quarter: 2010Q1

REPORT INFORMATION
  Report Type: 
  Country: None (occurrence: None)
  Receive Date: 20100128
  Receipt Date: 20100114
  Transmission Date: 20100710
  Serious: No
  Sender: FDA-Public Use
  Company Number: SPI200900401

PATIENT
  Age: 34 Year
  Sex: Female

DRUGS (2)
  1. AMITIZA [Suspect]
     Indication: CONSTIPATION
     Dosage: 24 MCG, SINGLE, ORAL
     Route: 048
     Dates: start: 20091205, end: 20091205
  2. TOPAMAX [Concomitant]

REACTIONS (6)
  - ABDOMINAL PAIN UPPER [None]
  - ADNEXA UTERI PAIN [None]
  - DIZZINESS [None]
  - MUSCLE SPASMS [None]
  - TREMOR [None]
  - VOMITING [None]
